FAERS Safety Report 4944047-5 (Version None)
Quarter: 2006Q1

REPORT INFORMATION
  Report Type: 
  Country: None (occurrence: None)
  Receive Date: 20060315
  Receipt Date: 20060307
  Transmission Date: 20060701
  Serious: Yes (Other)
  Sender: FDA-Public Use
  Company Number: AT-JNJFOC-20060302070

PATIENT
  Sex: Male

DRUGS (1)
  1. REMICADE [Suspect]
     Indication: CROHN'S DISEASE
     Route: 042

REACTIONS (5)
  - ANAPHYLACTIC REACTION [None]
  - CARDIOVASCULAR DISORDER [None]
  - FLUSHING [None]
  - INFUSION RELATED REACTION [None]
  - RESPIRATORY DISTRESS [None]
